FAERS Safety Report 9239182 (Version 1)
Quarter: 2013Q2

REPORT INFORMATION
  Report Type: Spontaneous
  Country: CA (occurrence: CA)
  Receive Date: 20130418
  Receipt Date: 20130418
  Transmission Date: 20140414
  Serious: Yes (Other)
  Sender: FDA-Public Use
  Company Number: CA-PFIZER INC-2013121957

PATIENT
  Sex: Female

DRUGS (1)
  1. LYRICA [Suspect]
     Dosage: UNK
     Dates: start: 20130415

REACTIONS (8)
  - Aphagia [Unknown]
  - Neoplasm [Unknown]
  - Glossodynia [Unknown]
  - Oropharyngeal pain [Unknown]
  - Skin disorder [Unknown]
  - Burning sensation [Unknown]
  - Hypoaesthesia oral [Unknown]
  - Paraesthesia oral [Unknown]
